FAERS Safety Report 5033940-3 (Version None)
Quarter: 2006Q2

REPORT INFORMATION
  Report Type: 
  Country: None (occurrence: None)
  Receive Date: 20060623
  Receipt Date: 20060605
  Transmission Date: 20061013
  Serious: Yes (Disabling, Other)
  Sender: FDA-Public Use
  Company Number: US-MERCK-0606USA00711

PATIENT
  Age: 51 Year
  Sex: Female

DRUGS (3)
  1. FOSAMAX [Suspect]
     Indication: OSTEOPOROSIS
     Route: 048
     Dates: start: 20060101, end: 20060401
  2. FOSAMAX [Suspect]
     Route: 048
     Dates: start: 20060101
  3. CALCIUM (UNSPECIFIED) [Concomitant]
     Route: 065

REACTIONS (6)
  - ARTHRALGIA [None]
  - BONE PAIN [None]
  - FATIGUE [None]
  - MUSCLE SPASMS [None]
  - MYALGIA [None]
  - PAIN IN EXTREMITY [None]
